FAERS Safety Report 5080962-2 (Version None)
Quarter: 2006Q3

REPORT INFORMATION
  Report Type: 
  Country: None (occurrence: None)
  Receive Date: 20060810
  Receipt Date: 20060731
  Transmission Date: 20061208
  Serious: Yes (Hospitalization)
  Sender: FDA-Public Use
  Company Number: B0433369A

PATIENT
  Age: 74 Year
  Sex: Male

DRUGS (2)
  1. PAXIL [Suspect]
     Indication: MAJOR DEPRESSION
  2. ALPRAZOLAM [Suspect]
     Indication: MAJOR DEPRESSION

REACTIONS (8)
  - BLOOD PRESSURE FLUCTUATION [None]
  - CEREBRAL ATROPHY [None]
  - DISORIENTATION [None]
  - EXTRAPYRAMIDAL DISORDER [None]
  - HEART RATE INCREASED [None]
  - NEUROLEPTIC MALIGNANT SYNDROME [None]
  - PSYCHOMOTOR RETARDATION [None]
  - TREMOR [None]
